FAERS Safety Report 9913318 (Version 1)
Quarter: 2014Q1

REPORT INFORMATION
  Report Type: Report from Study
  Country: SE (occurrence: SE)
  Receive Date: 20140220
  Receipt Date: 20140220
  Transmission Date: 20141002
  Serious: Yes (Hospitalization)
  Sender: FDA-Public Use
  Company Number: SE-AMGEN-SWECT2014011556

PATIENT
  Age: 51 Year
  Sex: Female

DRUGS (8)
  1. ETANERCEPT [Suspect]
     Indication: RHEUMATOID ARTHRITIS
     Dosage: 50 MG, QWK
     Route: 058
     Dates: start: 20080515, end: 200810
  2. FOLACIN                            /00198401/ [Concomitant]
     Dosage: UNK
  3. TIBINIDE [Concomitant]
     Dosage: 300 MG, QD
     Route: 048
     Dates: start: 200804, end: 200811
  4. METHOTREXATE [Concomitant]
     Dosage: UNK
     Dates: start: 2005, end: 2008
  5. NAPROXEN [Concomitant]
     Dosage: UNK
  6. ALVEDON [Concomitant]
     Dosage: UNK
  7. PREDNISOLON                        /00016201/ [Concomitant]
     Dosage: UNK
     Dates: start: 2005, end: 2008
  8. PYRIDOXIN [Concomitant]
     Dosage: 40 MG, QD
     Dates: start: 200804

REACTIONS (4)
  - Deep vein thrombosis [Recovering/Resolving]
  - Vasculitis cerebral [Recovered/Resolved with Sequelae]
  - Vision blurred [Recovering/Resolving]
  - Paraesthesia [Recovering/Resolving]
